FAERS Safety Report 4637828-9 (Version None)
Quarter: 2005Q2

REPORT INFORMATION
  Report Type: 
  Country: None (occurrence: None)
  Receive Date: 20050418
  Receipt Date: 20050412
  Transmission Date: 20051028
  Serious: Yes (Death)
  Sender: FDA-Public Use
  Company Number: US-BRISTOL-MYERS SQUIBB COMPANY-12929956

PATIENT
  Age: 71 Year
  Sex: Female
  Weight: 109 kg

DRUGS (9)
  1. GLUCOPHAGE XR [Suspect]
  2. PLAVIX [Suspect]
     Dates: start: 20000101
  3. LIPITOR [Concomitant]
  4. ACCUPRIL [Concomitant]
  5. POTASSIUM CHLORIDE [Concomitant]
  6. FUROSEMIDE [Concomitant]
  7. PROPRANOLOL [Concomitant]
  8. DOXEPIN HCL [Concomitant]
  9. ASPIRIN [Concomitant]

REACTIONS (1)
  - CEREBROVASCULAR ACCIDENT [None]
